FAERS Safety Report 20961580 (Version 3)
Quarter: 2022Q4

REPORT INFORMATION
  Report Type: Spontaneous
  Country: US (occurrence: US)
  Receive Date: 20220615
  Receipt Date: 20221014
  Transmission Date: 20230113
  Serious: Yes (Hospitalization)
  Sender: FDA-Public Use
  Company Number: US-CELGENE-USA-20220300357

PATIENT
  Age: 67 Year
  Sex: Female

DRUGS (3)
  1. POMALYST [Suspect]
     Active Substance: POMALIDOMIDE
     Indication: Plasma cell myeloma
     Route: 048
  2. POMALYST [Suspect]
     Active Substance: POMALIDOMIDE
     Dosage: 4 MG
     Route: 048
     Dates: start: 20210811
  3. POMALYST [Suspect]
     Active Substance: POMALIDOMIDE
     Dosage: 1 CAPSULE BY MOUTH ONCE A DAY FOR 21 DAYS, THEN 7 DAYS OFF
     Route: 048

REACTIONS (10)
  - Asthma [Recovered/Resolved]
  - Cough [Unknown]
  - Respiratory disorder [Unknown]
  - Product dose omission in error [Unknown]
  - Alopecia [Unknown]
  - Appetite disorder [Unknown]
  - Musculoskeletal pain [Unknown]
  - Nausea [Unknown]
  - White blood cell count decreased [Unknown]
  - Fatigue [Unknown]
